FAERS Safety Report 5296938-6 (Version None)
Quarter: 2007Q1

REPORT INFORMATION
  Report Type: 
  Country: None (occurrence: None)
  Receive Date: 20070201
  Receipt Date: 20061004
  Transmission Date: 20070707
  Serious: No
  Sender: FDA-Public Use
  Company Number: 2006PV022582

PATIENT
  Age: 69 Year
  Sex: Female
  Weight: 70.3075 kg

DRUGS (3)
  1. BYETTA [Suspect]
     Indication: DIABETES MELLITUS NON-INSULIN-DEPENDENT
     Dosage: SEE IMAGE
     Route: 058
  2. BYETTA [Suspect]
     Indication: DIABETES MELLITUS NON-INSULIN-DEPENDENT
     Dosage: SEE IMAGE
     Route: 058
     Dates: start: 20060601
  3. CELEBREX [Suspect]
     Indication: ARTHRALGIA

REACTIONS (7)
  - ARTHRALGIA [None]
  - BLOOD GLUCOSE INCREASED [None]
  - DISORIENTATION [None]
  - DISTURBANCE IN ATTENTION [None]
  - FORMICATION [None]
  - MYALGIA [None]
  - PALPITATIONS [None]
